FAERS Safety Report 5164373-7 (Version None)
Quarter: 2006Q4

REPORT INFORMATION
  Report Type: 
  Country: None (occurrence: None)
  Receive Date: 20061205
  Receipt Date: 20061122
  Transmission Date: 20070319
  Serious: Yes (Hospitalization)
  Sender: FDA-Public Use
  Company Number: PHBS2006BR18389

PATIENT
  Age: 88 Year
  Sex: Male
  Weight: 85 kg

DRUGS (5)
  1. SUSTRATE [Concomitant]
     Indication: CARDIOVASCULAR DISORDER
     Dosage: 2 TAB/DAY
     Route: 048
  2. DIGOXIN [Concomitant]
     Indication: ARRHYTHMIA
     Dosage: 0.5 TAB/DAY
     Route: 048
  3. AMIODARONE HYDROCHLORIDE [Concomitant]
     Indication: ARRHYTHMIA
     Dosage: 1 TAB/DAY
     Route: 048
  4. TRILEPTAL [Suspect]
     Indication: EPILEPSY
     Dosage: 300 MG/DAY
     Route: 048
     Dates: start: 20061028, end: 20061120
  5. TRILEPTAL [Suspect]
     Dosage: 300 MG/DAY
     Route: 048
     Dates: start: 20061123

REACTIONS (3)
  - EPILEPSY [None]
  - HOSPITALISATION [None]
  - SPEECH DISORDER [None]
